FAERS Safety Report 6502938-8 (Version None)
Quarter: 2009Q4

REPORT INFORMATION
  Report Type: 
  Country: None (occurrence: None)
  Receive Date: 20091217
  Receipt Date: 20091207
  Transmission Date: 20100525
  Serious: Yes (Hospitalization)
  Sender: FDA-Public Use
  Company Number: PHHY2009DE46880

PATIENT
  Age: 70 Year
  Sex: Male

DRUGS (3)
  1. DIOVAN HCT [Suspect]
     Indication: HYPERTENSION
     Dosage: 320/25 MG
  2. FRAGMIN [Suspect]
     Indication: ARTHROSCOPY
     Dosage: 1DF PER DAY
     Route: 058
     Dates: end: 20091113
  3. BELOC ZOK [Concomitant]
     Indication: HYPERTENSION

REACTIONS (3)
  - ARTHROSCOPY [None]
  - DIARRHOEA [None]
  - FAECES DISCOLOURED [None]
